FAERS Safety Report 10896715 (Version 1)
Quarter: 2015Q1

REPORT INFORMATION
  Report Type: Spontaneous
  Country: US (occurrence: None)
  Receive Date: 20150302
  Receipt Date: 20150302
  Transmission Date: 20150721
  Serious: Yes (Disabling)
  Sender: FDA-Public Use
  Company Number: None

PATIENT
  Age: 62 Year
  Sex: Female
  Weight: 54.43 kg

DRUGS (7)
  1. ESZOPICLONE. [Suspect]
     Active Substance: ESZOPICLONE
     Indication: SLEEP DISORDER
     Dosage: 1 TABLET AT BEDTIME
     Dates: start: 20140801, end: 20150226
  2. EPT BIODIENTICAL HRT [Concomitant]
  3. METAMUCIL [Concomitant]
     Active Substance: PLANTAGO SEED
  4. ASTELIN [Concomitant]
     Active Substance: AZELASTINE HYDROCHLORIDE
  5. LUNESTA [Concomitant]
     Active Substance: ESZOPICLONE
  6. DOXEPIN [Concomitant]
     Active Substance: DOXEPIN
  7. CALCIUM SUPPLEMENT (WITHOUT MAGNESIUM) [Concomitant]

REACTIONS (12)
  - Insomnia [None]
  - Product substitution issue [None]
  - Product quality issue [None]
  - Cerebral disorder [None]
  - Quality of life decreased [None]
  - Neurological symptom [None]
  - Anxiety disorder [None]
  - Restlessness [None]
  - Condition aggravated [None]
  - Panic attack [None]
  - Tremor [None]
  - Vision blurred [None]

NARRATIVE: CASE EVENT DATE: 20141127
